FAERS Safety Report 6024829-1 (Version None)
Quarter: 2008Q4

REPORT INFORMATION
  Report Type: 
  Country: None (occurrence: None)
  Receive Date: 20081230
  Receipt Date: 20081230
  Transmission Date: 20090506
  Serious: Yes (Life-Threatening, Hospitalization)
  Sender: FDA-Public Use
  Company Number: None

PATIENT
  Age: 75 Year
  Sex: Male
  Weight: 94.5 kg

DRUGS (10)
  1. LEXAPRO [Suspect]
     Dosage: MG QDAY PO
     Route: 048
  2. TRAMADOL HCL [Concomitant]
  3. PROTONIX [Concomitant]
  4. LYRICA [Concomitant]
  5. CARBO LEVODOPA [Concomitant]
  6. LEXAPRO [Concomitant]
  7. VITAMIN D [Concomitant]
  8. OXCARBAZEPINE [Concomitant]
  9. DIAZEPAM [Concomitant]
  10. ASPIRIN [Concomitant]

REACTIONS (6)
  - ASTHENIA [None]
  - FATIGUE [None]
  - NAUSEA [None]
  - NODAL ARRHYTHMIA [None]
  - PRESYNCOPE [None]
  - VOMITING [None]
